FAERS Safety Report 23864728 (Version 1)
Quarter: 2024Q2

REPORT INFORMATION
  Report Type: Spontaneous
  Country: US (occurrence: US)
  Receive Date: 20240516
  Receipt Date: 20240516
  Transmission Date: 20240716
  Serious: No
  Sender: FDA-Public Use
  Company Number: US-Allermed Laboratories, Inc.-2157106

PATIENT
  Age: 34 Year
  Sex: Female
  Weight: 90 kg

DRUGS (3)
  1. CYNODON DACTYLON POLLEN [Suspect]
     Active Substance: CYNODON DACTYLON POLLEN
     Indication: Product used for unknown indication
     Route: 023
     Dates: start: 20231016, end: 20231016
  2. STANDARDIZED MITE, DERMATOPHAGOIDES FARINAE [Suspect]
     Active Substance: DERMATOPHAGOIDES FARINAE
     Route: 023
     Dates: start: 20231016, end: 20231016
  3. STANDARDIZED MITE, DERMATOPHAGOIDES PTERONYSSINUS [Suspect]
     Active Substance: DERMATOPHAGOIDES PTERONYSSINUS
     Route: 023
     Dates: start: 20231016, end: 20231016

REACTIONS (1)
  - Lip oedema [Recovered/Resolved]

NARRATIVE: CASE EVENT DATE: 20231016
